FAERS Safety Report 18930399 (Version 4)
Quarter: 2021Q1

REPORT INFORMATION
  Report Type: Report from Study
  Country: None (occurrence: TR)
  Receive Date: 20210224
  Receipt Date: 20210312
  Transmission Date: 20210420
  Serious: Yes (Hospitalization, Other)
  Sender: FDA-Public Use
  Company Number: TR-ABBVIE-21K-161-3782243-00

PATIENT
  Age: 73 Year
  Sex: Female
  Weight: 80 kg

DRUGS (9)
  1. ENOX [Concomitant]
     Indication: HYPERTENSION
     Route: 058
     Dates: start: 2011
  2. DYLOXIA [Concomitant]
     Route: 048
     Dates: start: 20210224
  3. COVERAM [Concomitant]
     Active Substance: AMLODIPINE\PERINDOPRIL
     Indication: HYPERTENSION
     Route: 048
     Dates: start: 2015, end: 20210219
  4. ATARAX [Concomitant]
     Active Substance: HYDROXYZINE HYDROCHLORIDE
     Indication: DEPRESSION
     Route: 048
     Dates: start: 2020, end: 20210219
  5. ATARAX [Concomitant]
     Active Substance: HYDROXYZINE HYDROCHLORIDE
     Route: 048
     Dates: start: 20210224
  6. DUODOPA [Suspect]
     Active Substance: CARBIDOPA\LEVODOPA
  7. COVERAM [Concomitant]
     Active Substance: AMLODIPINE\PERINDOPRIL
     Route: 048
     Dates: start: 20210224
  8. DUODOPA [Suspect]
     Active Substance: CARBIDOPA\LEVODOPA
     Indication: PARKINSON^S DISEASE
     Dosage: MORNING DOSE (ML): 9.40, CONTINIOUS DOSE (ML): 3.40, EXTRA DOSE (ML): 1.00.
     Route: 050
     Dates: start: 20210217, end: 20210219
  9. DYLOXIA [Concomitant]
     Indication: DEPRESSION
     Route: 048
     Dates: start: 2019, end: 20210219

REACTIONS (10)
  - Duodenal perforation [Recovered/Resolved]
  - Constipation [Recovered/Resolved]
  - C-reactive protein increased [Recovered/Resolved]
  - Abdominal pain [Recovered/Resolved]
  - Stoma site discharge [Recovered/Resolved]
  - Hypophagia [Recovered/Resolved]
  - Abdominal tenderness [Recovered/Resolved]
  - Delirium [Recovered/Resolved]
  - Abdominal pain [Recovered/Resolved]
  - Abdominal distension [Recovered/Resolved]

NARRATIVE: CASE EVENT DATE: 202102
